FAERS Safety Report 19190327 (Version 1)
Quarter: 2021Q2

REPORT INFORMATION
  Report Type: Report from Study
  Country: GB (occurrence: GB)
  Receive Date: 20210428
  Receipt Date: 20210428
  Transmission Date: 20210717
  Serious: Yes (Hospitalization)
  Sender: FDA-Public Use
  Company Number: GB-MYLANLABS-2021M1012666

PATIENT
  Age: 47 Year
  Sex: Female

DRUGS (2)
  1. NAPROXEN. [Suspect]
     Active Substance: NAPROXEN
     Indication: PAIN
     Dosage: UNKNOWN
     Route: 065
  2. BENEPALI [Suspect]
     Active Substance: ETANERCEPT
     Indication: ANKYLOSING SPONDYLITIS
     Dosage: 50 MILLIGRAM, QW
     Route: 058
     Dates: start: 20210126, end: 202104

REACTIONS (32)
  - Oral infection [Unknown]
  - Injection site induration [Unknown]
  - Lip swelling [Unknown]
  - Swelling [Unknown]
  - Back pain [Not Recovered/Not Resolved]
  - Injection site pruritus [Unknown]
  - Drug ineffective [Unknown]
  - Feeling hot [Unknown]
  - Pain [Unknown]
  - Gingival bleeding [Not Recovered/Not Resolved]
  - Toothache [Not Recovered/Not Resolved]
  - Injection site pain [Unknown]
  - Injection site haemorrhage [Unknown]
  - Abdominal pain upper [Unknown]
  - Asthenia [Unknown]
  - Injection site bruising [Unknown]
  - Anger [Unknown]
  - Sleep disorder [Not Recovered/Not Resolved]
  - Gingival pain [Not Recovered/Not Resolved]
  - Swelling face [Not Recovered/Not Resolved]
  - Injection site warmth [Not Recovered/Not Resolved]
  - Weight increased [Unknown]
  - Rash erythematous [Unknown]
  - Arthralgia [Not Recovered/Not Resolved]
  - Wrong technique in product usage process [Unknown]
  - Injection site rash [Unknown]
  - Injection site swelling [Unknown]
  - Tooth infection [Unknown]
  - Injection site erythema [Not Recovered/Not Resolved]
  - Depressed mood [Not Recovered/Not Resolved]
  - Pain in extremity [Not Recovered/Not Resolved]
  - Loss of personal independence in daily activities [Unknown]
